FAERS Safety Report 20711305 (Version 4)
Quarter: 2022Q2

REPORT INFORMATION
  Report Type: Spontaneous
  Country: US (occurrence: US)
  Receive Date: 20220414
  Receipt Date: 20220629
  Transmission Date: 20220721
  Serious: No
  Sender: FDA-Public Use
  Company Number: US-BAUSCH-BL-2022-008617

PATIENT
  Age: 68 Year
  Sex: Male

DRUGS (1)
  1. BENZOYL PEROXIDE\ERYTHROMYCIN [Suspect]
     Active Substance: BENZOYL PEROXIDE\ERYTHROMYCIN
     Indication: Product used for unknown indication
     Dosage: 3%/5%
     Route: 065

REACTIONS (3)
  - Eye irritation [Unknown]
  - Product physical issue [Unknown]
  - Accidental exposure to product [Unknown]
